FAERS Safety Report 7224979-8 (Version None)
Quarter: 2011Q1

REPORT INFORMATION
  Report Type: 
  Country: None (occurrence: None)
  Receive Date: 20110113
  Receipt Date: 20110107
  Transmission Date: 20110831
  Serious: Yes (Hospitalization, Other)
  Sender: FDA-Public Use
  Company Number: US-BAYER-2010-002240

PATIENT
  Sex: Male

DRUGS (2)
  1. KOGENATE FS [Suspect]
  2. KOGENATE FS [Suspect]
     Indication: MUSCLE HAEMORRHAGE
     Dosage: 3500 U Q 8 HRS.
     Route: 042
     Dates: start: 20101101, end: 20101101

REACTIONS (1)
  - MUSCLE HAEMORRHAGE [None]
